FAERS Safety Report 8894869 (Version 1)
Quarter: 2012Q4

REPORT INFORMATION
  Report Type: 
  Country: CA (occurrence: CA)
  Receive Date: 20121107
  Receipt Date: 20121107
  Transmission Date: 20130627
  Serious: Yes (Other)
  Sender: FDA-Public Use
  Company Number: PHHY2001CA002515

PATIENT
  Age: 75 Year
  Sex: Male

DRUGS (3)
  1. EXELON [Suspect]
     Dosage: 1 mg, BID
     Route: 048
     Dates: start: 20010610
  2. EXELON [Interacting]
     Dosage: 6.0 mg, BID
     Route: 048
  3. DETROL [Interacting]
     Indication: HYPERTONIC BLADDER

REACTIONS (4)
  - Drug interaction [Recovering/Resolving]
  - Confusional state [Recovering/Resolving]
  - Hypertonic bladder [Unknown]
  - Fatigue [Recovered/Resolved]
